FAERS Safety Report 23819707 (Version 1)
Quarter: 2024Q2

REPORT INFORMATION
  Report Type: Spontaneous
  Country: US (occurrence: None)
  Receive Date: 20240503
  Receipt Date: 20240503
  Transmission Date: 20240716
  Serious: Yes (Hospitalization)
  Sender: FDA-Public Use
  Company Number: None

PATIENT
  Age: 59 Year
  Sex: Male

DRUGS (2)
  1. CEFTRIAXONE SODIUM [Suspect]
     Active Substance: CEFTRIAXONE SODIUM
     Indication: Infection
     Dosage: FREQUENCY : ONCE;?
     Route: 042
     Dates: start: 20221216, end: 20221216
  2. VANCOMYCIN HYDROCHLORIDE [Suspect]
     Active Substance: VANCOMYCIN HYDROCHLORIDE
     Dosage: FREQUENCY : ONCE;?
     Route: 042
     Dates: start: 20221216

REACTIONS (8)
  - Dyspnoea [None]
  - Hypotension [None]
  - Pruritus [None]
  - Rash [None]
  - Urticaria [None]
  - Vancomycin infusion reaction [None]
  - Blood pressure decreased [None]
  - Nausea [None]

NARRATIVE: CASE EVENT DATE: 20221216
